FAERS Safety Report 4591582-8 (Version None)
Quarter: 2005Q1

REPORT INFORMATION
  Report Type: 
  Country: None (occurrence: None)
  Receive Date: 20050223
  Receipt Date: 20050217
  Transmission Date: 20050727
  Serious: Yes (Other)
  Sender: FDA-Public Use
  Company Number: 05-01-0078

PATIENT
  Age: 52 Year
  Sex: Male

DRUGS (5)
  1. CLOZAPINE [Suspect]
     Indication: SCHIZOPHRENIA
     Dosage: 500 MG QD ORAL
     Route: 048
     Dates: start: 20010101, end: 20040401
  2. PEG-INTRON [Suspect]
     Indication: HEPATITIS C
     Dosage: 80MCG 0.5ML SUBCUTANEOUS
     Route: 058
     Dates: start: 20041101
  3. REBETOL [Suspect]
     Indication: HEPATITIS C
     Dosage: 200 MG TID ORAL
     Route: 048
     Dates: start: 20041101
  4. SEROQUEL [Concomitant]
  5. PAXIL CR [Concomitant]

REACTIONS (2)
  - HEPATITIS C [None]
  - WHITE BLOOD CELL COUNT DECREASED [None]
